FAERS Safety Report 10879756 (Version 1)
Quarter: 2015Q1

REPORT INFORMATION
  Report Type: Spontaneous
  Country: US (occurrence: None)
  Receive Date: 20150224
  Receipt Date: 20150224
  Transmission Date: 20150721
  Serious: Yes (Hospitalization)
  Sender: FDA-Public Use
  Company Number: None

PATIENT
  Age: 67 Year
  Sex: Female
  Weight: 54.3 kg

DRUGS (1)
  1. GEMCITABINE HYDROCHLORIDE. [Suspect]
     Active Substance: GEMCITABINE HYDROCHLORIDE
     Dosage: COMMENTS:  THE ABOVE LISTED DOSE IS FOR CYCLE 2 DAYS 1 ONLY, CYCLE 1 WAS COMPLETED WITHOUT DIFFICULTY OR COMPLAINT.
     Dates: end: 20150205

REACTIONS (6)
  - Pulmonary hypertension [None]
  - Oral disorder [None]
  - Cardiac disorder [None]
  - Pharyngeal erythema [None]
  - Dyspnoea [None]
  - Oropharyngeal pain [None]

NARRATIVE: CASE EVENT DATE: 20150208
